FAERS Safety Report 15446111 (Version 1)
Quarter: 2018Q3

REPORT INFORMATION
  Report Type: Spontaneous
  Country: US (occurrence: US)
  Receive Date: 20180928
  Receipt Date: 20180928
  Transmission Date: 20181010
  Serious: No
  Sender: FDA-Public Use
  Company Number: US-AMGEN-USASP2018077499

PATIENT
  Age: 73 Year
  Sex: Female

DRUGS (2)
  1. PROLIA [Suspect]
     Active Substance: DENOSUMAB
     Indication: PRODUCT USED FOR UNKNOWN INDICATION
     Dosage: 60 MG, UNK
     Route: 065
  2. PROLIA [Suspect]
     Active Substance: DENOSUMAB
     Dosage: 60 MG, UNK
     Route: 065
     Dates: start: 201805

REACTIONS (1)
  - Diarrhoea [Not Recovered/Not Resolved]
